FAERS Safety Report 20641249 (Version 2)
Quarter: 2022Q1

REPORT INFORMATION
  Report Type: Spontaneous
  Country: US (occurrence: US)
  Receive Date: 20220328
  Receipt Date: 20220331
  Transmission Date: 20220424
  Serious: No
  Sender: FDA-Public Use
  Company Number: US-BAUSCH-BL-2022-007427

PATIENT
  Age: 67 Year
  Sex: Female
  Weight: 81.720 kg

DRUGS (4)
  1. BESIVANCE [Suspect]
     Active Substance: BESIFLOXACIN
     Indication: Endophthalmitis
     Route: 047
     Dates: start: 20220316, end: 20220321
  2. BESIVANCE [Suspect]
     Active Substance: BESIFLOXACIN
     Indication: Off label use
  3. ATROPINE [Concomitant]
     Active Substance: ATROPINE
     Indication: Product used for unknown indication
     Route: 065
  4. PREDNISOLONE ACETATE [Concomitant]
     Active Substance: PREDNISOLONE ACETATE
     Indication: Product used for unknown indication
     Route: 065

REACTIONS (3)
  - Instillation site hypersensitivity [Recovering/Resolving]
  - Instillation site pain [Recovering/Resolving]
  - Off label use [Unknown]

NARRATIVE: CASE EVENT DATE: 20220301
